FAERS Safety Report 13638474 (Version 2)
Quarter: 2017Q2

REPORT INFORMATION
  Report Type: Spontaneous
  Country: CH (occurrence: PT)
  Receive Date: 20170609
  Receipt Date: 20170620
  Transmission Date: 20170830
  Serious: Yes (Other)
  Sender: FDA-Public Use
  Company Number: CH-LPDUSPRD-20170742

PATIENT
  Age: 85 Year
  Sex: Female

DRUGS (1)
  1. FERINJECT [Suspect]
     Active Substance: FERRIC CARBOXYMALTOSE
     Dosage: 1000 MG
     Route: 041
     Dates: start: 20170519, end: 20170519

REACTIONS (5)
  - Dyspnoea [Unknown]
  - Stridor [Unknown]
  - Hyperhidrosis [Unknown]
  - Pallor [Unknown]
  - Flushing [Unknown]

NARRATIVE: CASE EVENT DATE: 20170519
